FAERS Safety Report 9615267 (Version 2)
Quarter: 2013Q4

REPORT INFORMATION
  Report Type: Spontaneous
  Country: US (occurrence: US)
  Receive Date: 20131011
  Receipt Date: 20131011
  Transmission Date: 20140711
  Serious: No
  Sender: FDA-Public Use
  Company Number: US-PURDUE-USA-2013-0097338

PATIENT
  Sex: Female

DRUGS (2)
  1. BUTRANS [Suspect]
     Indication: PAIN
     Dosage: 20 MCG, UNK
     Route: 062
  2. OXYCODONE                          /00045603/ [Concomitant]
     Indication: BREAKTHROUGH PAIN
     Dosage: 15 MG, QID
     Route: 048

REACTIONS (3)
  - Drug effect delayed [Unknown]
  - Inadequate analgesia [Unknown]
  - Drug ineffective [Not Recovered/Not Resolved]
